FAERS Safety Report 8837480 (Version 1)
Quarter: 2012Q4

REPORT INFORMATION
  Report Type: 
  Country: US (occurrence: US)
  Receive Date: 20121012
  Receipt Date: 20121012
  Transmission Date: 20130627
  Serious: Yes (Other)
  Sender: FDA-Public Use
  Company Number: US-JNJFOC-20121005373

PATIENT
  Sex: Male

DRUGS (2)
  1. EXTRA STRENGTH TYLENOL [Suspect]
     Indication: MYALGIA
     Dosage: 500mg/caplet, 2 caplets 1 time at bed time for 10 plus years
     Route: 048
  2. EXTRA STRENGTH TYLENOL [Suspect]
     Indication: ARTHRITIS
     Dosage: 500mg/caplet, 2 caplets 1 time at bed time for 10 plus years
     Route: 048

REACTIONS (2)
  - Deafness [Not Recovered/Not Resolved]
  - Intentional drug misuse [Unknown]
